FAERS Safety Report 16705703 (Version 1)
Quarter: 2019Q3

REPORT INFORMATION
  Report Type: Spontaneous
  Country: US (occurrence: US)
  Receive Date: 20190815
  Receipt Date: 20190815
  Transmission Date: 20191004
  Serious: No
  Sender: FDA-Public Use
  Company Number: US-BAYER-2019-150656

PATIENT
  Age: 48 Year
  Sex: Female
  Weight: 61.22 kg

DRUGS (7)
  1. MIRALAX [Suspect]
     Active Substance: POLYETHYLENE GLYCOL 3350
     Indication: GASTROINTESTINAL DISORDER
     Dosage: UNK
     Dates: start: 201908
  2. TOCOPHEROL [Concomitant]
     Active Substance: TOCOPHEROL
  3. CALCIUM [Concomitant]
     Active Substance: CALCIUM
  4. MIRALAX [Suspect]
     Active Substance: POLYETHYLENE GLYCOL 3350
     Indication: GASTROINTESTINAL DISORDER
     Dosage: UNK
     Dates: start: 2009, end: 2019
  5. BABY ASPIRIN [Concomitant]
     Active Substance: ASPIRIN
  6. MIRALAX [Suspect]
     Active Substance: POLYETHYLENE GLYCOL 3350
     Indication: GASTROINTESTINAL DISORDER
     Dosage: 17 G, IRR
     Route: 048
     Dates: start: 2019, end: 201908
  7. TOCOPHEROL [Concomitant]
     Active Substance: TOCOPHEROL
     Dosage: UNK

REACTIONS (5)
  - Therapeutic product effect variable [None]
  - Flatulence [Recovered/Resolved]
  - Frequent bowel movements [None]
  - Incorrect product administration duration [Unknown]
  - Abnormal faeces [Recovered/Resolved]

NARRATIVE: CASE EVENT DATE: 201907
